FAERS Safety Report 6812660-6 (Version None)
Quarter: 2010Q3

REPORT INFORMATION
  Report Type: 
  Country: None (occurrence: None)
  Receive Date: 20100701
  Receipt Date: 20100629
  Transmission Date: 20110219
  Serious: Yes (Hospitalization)
  Sender: FDA-Public Use
  Company Number: AT-ROCHE-702514

PATIENT
  Sex: Female
  Weight: 55 kg

DRUGS (5)
  1. PEGINTERFERON ALFA-2A [Suspect]
     Dosage: LAST DOSE PRIOR TO SAE 10 MAY 2010.
     Route: 058
     Dates: start: 20091211
  2. RIBAVIRIN [Suspect]
     Dosage: FREQUENCY REPORTED AS 3-0-2. LAST DOSE PRIOR TO SAE 7 MAY 2010
     Route: 048
     Dates: start: 20091211
  3. GLADEM [Concomitant]
  4. SUBSTITOL [Concomitant]
  5. OXAZEPAM [Concomitant]
     Dosage: DRUG REPORTED: PRAXITEN 100 MG

REACTIONS (1)
  - DELIRIUM [None]
